FAERS Safety Report 23074400 (Version 1)
Quarter: 2023Q4

REPORT INFORMATION
  Report Type: Spontaneous
  Country: US (occurrence: US)
  Receive Date: 20231017
  Receipt Date: 20231017
  Transmission Date: 20240110
  Serious: Yes (Life-Threatening, Hospitalization, Other)
  Sender: FDA-Public Use
  Company Number: US-BAXTER-2023BAX033094

PATIENT
  Age: 54 Year
  Sex: Female

DRUGS (3)
  1. HALOPERIDOL [Interacting]
     Active Substance: HALOPERIDOL
     Indication: Bipolar disorder
     Route: 065
  2. QUETIAPINE [Interacting]
     Active Substance: QUETIAPINE
     Indication: Bipolar disorder
     Route: 065
  3. COCAINE [Interacting]
     Active Substance: COCAINE
     Route: 065

REACTIONS (12)
  - Drug interaction [Unknown]
  - Haemophagocytic lymphohistiocytosis [Unknown]
  - Neuroleptic malignant syndrome [Unknown]
  - Unresponsive to stimuli [Unknown]
  - Pyrexia [Unknown]
  - Shock [Unknown]
  - Depressed level of consciousness [Unknown]
  - Muscle rigidity [Unknown]
  - Azotaemia [Unknown]
  - Normochromic normocytic anaemia [Unknown]
  - Thrombocytopenia [Unknown]
  - Hepatosplenomegaly [Unknown]
